FAERS Safety Report 5859833-7 (Version None)
Quarter: 2008Q3

REPORT INFORMATION
  Report Type: 
  Country: None (occurrence: None)
  Receive Date: 20080827
  Receipt Date: 20080819
  Transmission Date: 20090109
  Serious: Yes (Other)
  Sender: FDA-Public Use
  Company Number: US-MERCK-0808USA03685

PATIENT
  Sex: Male

DRUGS (1)
  1. INVANZ [Suspect]
     Route: 042
     Dates: start: 20080812, end: 20080815

REACTIONS (3)
  - DEMENTIA [None]
  - MUSCLE RIGIDITY [None]
  - TREMOR [None]
